FAERS Safety Report 17350780 (Version 1)
Quarter: 2020Q1

REPORT INFORMATION
  Report Type: Spontaneous
  Country: NL (occurrence: NL)
  Receive Date: 20200130
  Receipt Date: 20200130
  Transmission Date: 20200409
  Serious: Yes (Death)
  Sender: FDA-Public Use
  Company Number: NL-TEVA-2020-NL-1177323

PATIENT
  Age: 77 Year
  Sex: Female
  Weight: 70.5 kg

DRUGS (3)
  1. OMEPRAZOL [Concomitant]
     Active Substance: OMEPRAZOLE
  2. PREGABALINE [Suspect]
     Active Substance: PREGABALIN
     Indication: PAIN
     Dosage: 75 MG (MILLIGRAM),2 TIMES A DAY, 1
     Dates: start: 20191105
  3. ALENCALCI D3 (ALENDRONINEZUUR/CALCIUMCARBONAAT/COLECALCIFEROL) [Concomitant]

REACTIONS (1)
  - Sudden cardiac death [Fatal]

NARRATIVE: CASE EVENT DATE: 20191224
